FAERS Safety Report 6450617-8 (Version None)
Quarter: 2009Q4

REPORT INFORMATION
  Report Type: 
  Country: None (occurrence: None)
  Receive Date: 20091123
  Receipt Date: 20091110
  Transmission Date: 20100525
  Serious: Yes (Other)
  Sender: FDA-Public Use
  Company Number: US-BAYER-200938990NA

PATIENT
  Sex: Female

DRUGS (1)
  1. YASMIN [Suspect]
     Indication: DRUG USE FOR UNKNOWN INDICATION
     Dates: start: 20010101, end: 20030901

REACTIONS (7)
  - ASTHENIA [None]
  - CHEST PAIN [None]
  - FATIGUE [None]
  - JUGULAR VEIN THROMBOSIS [None]
  - MESENTERIC ARTERY EMBOLISM [None]
  - PULMONARY EMBOLISM [None]
  - PULMONARY HYPERTENSION [None]
